FAERS Safety Report 4570760-8 (Version None)
Quarter: 2005Q1

REPORT INFORMATION
  Report Type: 
  Country: None (occurrence: None)
  Receive Date: 20050202
  Receipt Date: 20050119
  Transmission Date: 20050727
  Serious: Yes (Hospitalization)
  Sender: FDA-Public Use
  Company Number: FR_050105635

PATIENT
  Age: 38 Year
  Sex: Male

DRUGS (4)
  1. ZYPREXA [Suspect]
     Indication: PSYCHOTIC DISORDER
     Dosage: 10 MG/1 DAY
     Dates: start: 20040415, end: 20050105
  2. VALPROATE SODIUM [Concomitant]
  3. LEPTICUR (TROPATEPINE HYDROCHLORIDE) [Concomitant]
  4. TRANXENE (CLOAZEPATE DIPOTASSIUM) [Concomitant]

REACTIONS (2)
  - PSEUDO LYMPHOMA [None]
  - RASH GENERALISED [None]
